FAERS Safety Report 21112143 (Version 1)
Quarter: 2022Q3

REPORT INFORMATION
  Report Type: Spontaneous
  Country: US (occurrence: None)
  Receive Date: 20220721
  Receipt Date: 20220721
  Transmission Date: 20221027
  Serious: No
  Sender: FDA-Public Use
  Company Number: None

PATIENT
  Age: 77 Year
  Sex: Male
  Weight: 87.54 kg

DRUGS (27)
  1. ABIRATERONE [Suspect]
     Active Substance: ABIRATERONE
     Indication: Prostate cancer
     Dosage: FREQUENCY : DAILY;?
     Route: 048
     Dates: start: 202007
  2. ALPHA LIPOIC ACID [Concomitant]
     Active Substance: .ALPHA.-LIPOIC ACID
  3. AMLODIPINE [Concomitant]
     Active Substance: AMLODIPINE BESYLATE
  4. CALCIUM + D [Concomitant]
  5. CANNABIDIOL [Concomitant]
     Active Substance: CANNABIDIOL
  6. CELEBREX [Concomitant]
     Active Substance: CELECOXIB
  7. COENZYME Q10 [Concomitant]
     Active Substance: DIETARY SUPPLEMENT\UBIDECARENONE
  8. DOCUSATE [Concomitant]
     Active Substance: DOCUSATE
  9. ELIGARD [Concomitant]
     Active Substance: LEUPROLIDE ACETATE
  10. EMVERM [Concomitant]
     Active Substance: MEBENDAZOLE
  11. ESOMEPRAZOLE [Concomitant]
     Active Substance: ESOMEPRAZOLE
  12. FLOMAX [Concomitant]
     Active Substance: TAMSULOSIN HYDROCHLORIDE
  13. GABAPENTIN [Concomitant]
     Active Substance: GABAPENTIN
  14. KENALOG [Concomitant]
     Active Substance: TRIAMCINOLONE ACETONIDE
  15. LIPITOR [Concomitant]
     Active Substance: ATORVASTATIN CALCIUM
  16. LUPRON [Concomitant]
     Active Substance: LEUPROLIDE ACETATE
  17. MAG CITRATE [Concomitant]
  18. METOPROLOL [Concomitant]
     Active Substance: METOPROLOL
  19. METRONIDAZOLE [Concomitant]
     Active Substance: METRONIDAZOLE
  20. OMEGA 3 [Concomitant]
     Active Substance: CAPSAICIN
  21. ONDANSETRON [Concomitant]
     Active Substance: ONDANSETRON
  22. PREDNISONE [Concomitant]
     Active Substance: PREDNISONE
  23. SENNA [Concomitant]
     Active Substance: SENNA LEAF\SENNOSIDES\SENNOSIDES A AND B
  24. TIMOLOL [Concomitant]
     Active Substance: TIMOLOL
  25. TYLENOL [Concomitant]
     Active Substance: ACETAMINOPHEN
  26. VITAMIN C [Concomitant]
     Active Substance: ASCORBIC ACID
  27. VITAMIN D3 [Concomitant]
     Active Substance: CHOLECALCIFEROL

REACTIONS (1)
  - Disease progression [None]
